FAERS Safety Report 6756622-6 (Version None)
Quarter: 2010Q2

REPORT INFORMATION
  Report Type: 
  Country: None (occurrence: None)
  Receive Date: 20100604
  Receipt Date: 20100528
  Transmission Date: 20101027
  Serious: Yes (Other)
  Sender: FDA-Public Use
  Company Number: BR-ABBOTT-09P-020-0605352-00

PATIENT
  Sex: Female
  Weight: 75 kg

DRUGS (13)
  1. HUMIRA [Suspect]
     Indication: RHEUMATOID ARTHRITIS
     Route: 058
     Dates: start: 20081202
  2. INSULIN [Concomitant]
     Indication: DIABETES MELLITUS
     Route: 058
     Dates: start: 20050101
  3. CAPTOPRIL [Concomitant]
     Indication: BLOOD PRESSURE
     Route: 048
     Dates: start: 19890101
  4. PREDNISONE [Concomitant]
     Indication: RHEUMATOID ARTHRITIS
     Dosage: 1 TABLET, THEN 0.5 TABLET ON THE OTHER DAY
     Route: 048
     Dates: start: 19890101
  5. PREDNISONE [Concomitant]
     Indication: PAIN
     Dosage: ODD DAYS
     Route: 048
     Dates: start: 19890101
  6. FOLIC ACID [Concomitant]
     Indication: ANAEMIA
     Route: 048
     Dates: start: 20070101
  7. OMEPRAZOLE [Concomitant]
     Indication: GASTRIC DISORDER
     Route: 048
     Dates: start: 20070101
  8. METFORMIN [Concomitant]
     Indication: DIABETES MELLITUS
     Route: 048
     Dates: start: 20070101
  9. CIPROFLOXACIN [Concomitant]
     Indication: ANTIBIOTIC PROPHYLAXIS
     Route: 048
     Dates: start: 20091101
  10. METHOTREXATE [Concomitant]
     Indication: RHEUMATOID ARTHRITIS
     Route: 030
     Dates: end: 20080101
  11. CAFFEINE/CARISOPRODOL/DICLOFENAC SODIUM/PARACETAMOL [Concomitant]
     Indication: PAIN
     Dosage: 30MG/125MG/50MG/300MG
     Route: 048
  12. LIPANOL [Concomitant]
     Indication: BLOOD TRIGLYCERIDES
     Route: 048
     Dates: start: 20090101
  13. FERROUS GLYCINATE/FOLIC ACID [Concomitant]
     Indication: ANAEMIA
     Dosage: 150MG/5MG
     Route: 048
     Dates: start: 20090101

REACTIONS (14)
  - ANAEMIA [None]
  - APPLICATION SITE PRURITUS [None]
  - ARTHROPATHY [None]
  - BLOOD TRIGLYCERIDES INCREASED [None]
  - CALCULUS URETHRAL [None]
  - CARTILAGE ATROPHY [None]
  - DYSPHONIA [None]
  - INJECTION SITE ERYTHEMA [None]
  - MOBILITY DECREASED [None]
  - MUSCULOSKELETAL PAIN [None]
  - NEPHROLITHIASIS [None]
  - OSTEOPOROSIS [None]
  - PAIN IN EXTREMITY [None]
  - WEIGHT DECREASED [None]
